FAERS Safety Report 15935015 (Version 3)
Quarter: 2019Q2

REPORT INFORMATION
  Report Type: Spontaneous
  Country: US (occurrence: US)
  Receive Date: 20190207
  Receipt Date: 20190403
  Transmission Date: 20190711
  Serious: No
  Sender: FDA-Public Use
  Company Number: US-GLAXOSMITHKLINE-US2019017426

PATIENT
  Sex: Female

DRUGS (2)
  1. BENLYSTA [Suspect]
     Active Substance: BELIMUMAB
     Indication: PRODUCT USED FOR UNKNOWN INDICATION
     Route: 058
  2. BENLYSTA [Suspect]
     Active Substance: BELIMUMAB
     Indication: SYSTEMIC LUPUS ERYTHEMATOSUS
     Dosage: 200 MG/ML, WE
     Route: 058
     Dates: start: 201901, end: 201902

REACTIONS (13)
  - Balance disorder [Recovering/Resolving]
  - Depression [Unknown]
  - Somnolence [Unknown]
  - Tremor [Recovering/Resolving]
  - Crying [Recovering/Resolving]
  - Underdose [Unknown]
  - Pain [Unknown]
  - Wrong technique in device usage process [Unknown]
  - Insomnia [Unknown]
  - Nervousness [Recovering/Resolving]
  - Condition aggravated [Recovering/Resolving]
  - Overdose [Unknown]
  - Rash generalised [Recovering/Resolving]
